FAERS Safety Report 15899349 (Version 1)
Quarter: 2019Q1

REPORT INFORMATION
  Report Type: Other
  Country: KR (occurrence: KR)
  Receive Date: 20190201
  Receipt Date: 20190201
  Transmission Date: 20190417
  Serious: Yes (Other)
  Sender: FDA-Public Use
  Company Number: KR-DENTSPLY-2019SCDP000047

PATIENT
  Age: 34 Year
  Sex: Male
  Weight: 79 kg

DRUGS (8)
  1. ROPIVACAINE HCL [Suspect]
     Active Substance: ROPIVACAINE HYDROCHLORIDE
     Indication: LOCAL ANAESTHESIA
     Dosage: 20 ML, 0.75%
  2. ROPIVACAINE HCL [Suspect]
     Active Substance: ROPIVACAINE HYDROCHLORIDE
     Indication: NERVE BLOCK
  3. LIDOCAINE. [Suspect]
     Active Substance: LIDOCAINE
     Indication: LOCAL ANAESTHESIA
     Dosage: 20 ML, 2%
  4. NORMAL SALINE [Suspect]
     Active Substance: SODIUM CHLORIDE
     Indication: LOCAL ANAESTHESIA
     Dosage: 20 ML, UNK
  5. EPINEPHRINE. [Suspect]
     Active Substance: EPINEPHRINE
     Indication: LOCAL ANAESTHESIA
     Dosage: UNK
  6. EPINEPHRINE. [Suspect]
     Active Substance: EPINEPHRINE
     Indication: NERVE BLOCK
  7. NORMAL SALINE [Suspect]
     Active Substance: SODIUM CHLORIDE
     Indication: NERVE BLOCK
  8. FENTANYL. [Suspect]
     Active Substance: FENTANYL
     Indication: PRODUCT USED FOR UNKNOWN INDICATION
     Dosage: 50 MICROGRAM, UNK
     Route: 042

REACTIONS (6)
  - Pupils unequal [Recovered/Resolved]
  - Pupillary reflex impaired [Recovered/Resolved]
  - Heart rate increased [Recovered/Resolved]
  - Accidental exposure to product [Recovered/Resolved]
  - Cerebral haemorrhage [Recovered/Resolved]
  - Product administration error [Recovered/Resolved]
